FAERS Safety Report 9932487 (Version 1)
Quarter: 2014Q1

REPORT INFORMATION
  Report Type: Spontaneous
  Country: US (occurrence: US)
  Receive Date: 20140228
  Receipt Date: 20140228
  Transmission Date: 20141002
  Serious: No
  Sender: FDA-Public Use
  Company Number: US-ABBVIE-13P-163-1181400-00

PATIENT
  Sex: Male
  Weight: 65.83 kg

DRUGS (11)
  1. ANDROGEL [Suspect]
     Indication: BLOOD TESTOSTERONE DECREASED
     Dates: start: 201306
  2. ANDROGEL [Suspect]
     Dates: start: 2011, end: 201306
  3. VICODIN [Concomitant]
     Indication: PAIN
  4. ATIVAN [Concomitant]
     Indication: POST-TRAUMATIC STRESS DISORDER
  5. ATIVAN [Concomitant]
     Indication: DISSOCIATIVE IDENTITY DISORDER
  6. CLONAZEPAM [Concomitant]
     Indication: POST-TRAUMATIC STRESS DISORDER
  7. CLONAZEPAM [Concomitant]
     Indication: DISSOCIATIVE IDENTITY DISORDER
  8. HIV MEDICATION [Concomitant]
     Indication: HIV INFECTION
  9. ALLERGY MEDICATIONS [Concomitant]
     Indication: HYPERSENSITIVITY
  10. SYNTHROID [Concomitant]
     Indication: AUTOIMMUNE THYROIDITIS
  11. REMERON [Concomitant]
     Indication: ANTIDEPRESSANT THERAPY

REACTIONS (11)
  - Folliculitis [Not Recovered/Not Resolved]
  - Oedema peripheral [Not Recovered/Not Resolved]
  - Wound [Not Recovered/Not Resolved]
  - Road traffic accident [Recovered/Resolved]
  - Cervical vertebral fracture [Not Recovered/Not Resolved]
  - Oedema peripheral [Not Recovered/Not Resolved]
  - Sternal fracture [Recovered/Resolved]
  - Kyphosis [Not Recovered/Not Resolved]
  - Back pain [Not Recovered/Not Resolved]
  - Groin pain [Recovered/Resolved]
  - Dyspnoea [Recovered/Resolved]
